FAERS Safety Report 9611809 (Version 1)
Quarter: 2013Q4

REPORT INFORMATION
  Report Type: Spontaneous
  Country: FR (occurrence: FR)
  Receive Date: 20131010
  Receipt Date: 20131010
  Transmission Date: 20140711
  Serious: Yes (Hospitalization)
  Sender: FDA-Public Use
  Company Number: FR-JNJFOC-20131005086

PATIENT
  Age: 14 Year
  Sex: Male

DRUGS (1)
  1. IXPRIM [Suspect]
     Indication: POST-TRAUMATIC PAIN
     Route: 048
     Dates: start: 20130906, end: 20130909

REACTIONS (3)
  - Dizziness [Recovered/Resolved]
  - Nausea [Recovered/Resolved]
  - Erythema [Recovered/Resolved]
